FAERS Safety Report 7667993-0 (Version None)
Quarter: 2011Q3

REPORT INFORMATION
  Report Type: 
  Country: None (occurrence: None)
  Receive Date: 20110808
  Receipt Date: 20110802
  Transmission Date: 20111222
  Serious: Yes (Other)
  Sender: FDA-Public Use
  Company Number: GB-BRISTOL-MYERS SQUIBB COMPANY-15946718

PATIENT

DRUGS (1)
  1. ABATACEPT [Suspect]
     Dosage: SECOND DOSE ON 14 JUN 2011
     Dates: start: 20110531

REACTIONS (3)
  - URINARY TRACT INFECTION [None]
  - SEPSIS [None]
  - FEMUR FRACTURE [None]
